FAERS Safety Report 7555653-6 (Version None)
Quarter: 2011Q2

REPORT INFORMATION
  Report Type: 
  Country: None (occurrence: None)
  Receive Date: 20110617
  Receipt Date: 20080515
  Transmission Date: 20111010
  Serious: Yes (Other)
  Sender: FDA-Public Use
  Company Number: PHHO2007BR13348

PATIENT
  Age: 64 Year
  Sex: Female
  Weight: 78 kg

DRUGS (4)
  1. ENALAPRIL MALEATE [Concomitant]
  2. DIOVAN HCT [Suspect]
     Indication: HYPERTENSION
     Dosage: 160/12.5MG/DAILY
     Route: 048
  3. METFORMIN HYDROCHLORIDE [Concomitant]
     Dosage: 500 MG, QD
     Route: 048
  4. METFORMIN HYDROCHLORIDE [Concomitant]
     Indication: DIABETES MELLITUS
     Dosage: 800 MG, QHS

REACTIONS (11)
  - MALAISE [None]
  - DIZZINESS [None]
  - DIABETES MELLITUS [None]
  - HEART RATE INCREASED [None]
  - FATIGUE [None]
  - HEADACHE [None]
  - DYSPNOEA [None]
  - INNER EAR DISORDER [None]
  - PAIN [None]
  - CHILLS [None]
  - HYPERHIDROSIS [None]
